FAERS Safety Report 4815372-3 (Version None)
Quarter: 2005Q4

REPORT INFORMATION
  Report Type: 
  Country: None (occurrence: None)
  Receive Date: 20051027
  Receipt Date: 20051014
  Transmission Date: 20060501
  Serious: Yes (Hospitalization, Other)
  Sender: FDA-Public Use
  Company Number: KII-2005-0019058

PATIENT
  Age: 46 Year
  Sex: Male

DRUGS (7)
  1. OXYCONTIN [Suspect]
     Indication: PAIN
     Dosage: ORAL
     Route: 048
  2. OLANZAPINE [Suspect]
     Dosage: ORAL
     Route: 048
  3. PHENYTOIN [Suspect]
     Dosage: ORAL
     Route: 048
  4. GABAPENTIN [Suspect]
     Dosage: ORAL
     Route: 048
  5. BARBITURATES [Suspect]
  6. BENZODIAZEPINE DERIVATES [Suspect]
  7. METAMFETAMINE (METAMFETAMINE) [Suspect]

REACTIONS (9)
  - AGITATION [None]
  - AREFLEXIA [None]
  - COMA [None]
  - DYSARTHRIA [None]
  - GENERAL PHYSICAL HEALTH DETERIORATION [None]
  - LOSS OF CONSCIOUSNESS [None]
  - MULTIPLE DRUG OVERDOSE [None]
  - RESPIRATORY DISORDER [None]
  - SOMNOLENCE [None]
